FAERS Safety Report 21783870 (Version 2)
Quarter: 2023Q1

REPORT INFORMATION
  Report Type: Spontaneous
  Country: US (occurrence: US)
  Receive Date: 20221227
  Receipt Date: 20230120
  Transmission Date: 20230418
  Serious: No
  Sender: FDA-Public Use
  Company Number: US-PFIZER INC-202201387435

PATIENT
  Age: 71 Year
  Sex: Female
  Weight: 101.15 kg

DRUGS (1)
  1. LEVOTHYROXINE SODIUM [Suspect]
     Active Substance: LEVOTHYROXINE SODIUM
     Dosage: UNK
     Dates: start: 2013

REACTIONS (6)
  - Palpitations [Recovering/Resolving]
  - Heart rate irregular [Unknown]
  - Headache [Recovering/Resolving]
  - Blood pressure increased [Unknown]
  - Musculoskeletal stiffness [Recovered/Resolved]
  - Body height decreased [Unknown]

NARRATIVE: CASE EVENT DATE: 20230117
